FAERS Safety Report 9340943 (Version 1)
Quarter: 2013Q2

REPORT INFORMATION
  Report Type: Spontaneous
  Country: GB (occurrence: GB)
  Receive Date: 20130610
  Receipt Date: 20130610
  Transmission Date: 20140414
  Serious: Yes (Life-Threatening, Hospitalization, Other)
  Sender: FDA-Public Use
  Company Number: GB-B.I. PHARMACEUTICALS,INC./RIDGEFIELD-2013-UK-01227UK

PATIENT
  Age: 67 Year
  Sex: Male
  Weight: 113 kg

DRUGS (6)
  1. SPIRONOLACTONE [Concomitant]
     Dosage: 25 MG
  2. PRADAXA [Suspect]
     Indication: CARDIOVASCULAR EVENT PROPHYLAXIS
     Dosage: 110 MG
     Route: 048
     Dates: start: 20130101, end: 20130520
  3. BIMATOPROST [Concomitant]
     Route: 031
  4. BISOPROLOL [Concomitant]
     Dosage: 5 MG
  5. GAVISCON [Concomitant]
  6. PRAVASTATIN [Concomitant]
     Dosage: 10 MG

REACTIONS (7)
  - Myocardial infarction [Not Recovered/Not Resolved]
  - Convulsion [Not Recovered/Not Resolved]
  - Duodenal ulcer [Not Recovered/Not Resolved]
  - Gastric haemorrhage [Not Recovered/Not Resolved]
  - Chest pain [Not Recovered/Not Resolved]
  - Dyspnoea [Not Recovered/Not Resolved]
  - Haematemesis [Not Recovered/Not Resolved]
